FAERS Safety Report 12669749 (Version 2)
Quarter: 2016Q4

REPORT INFORMATION
  Report Type: Report from Study
  Country: None (occurrence: DE)
  Receive Date: 20160819
  Receipt Date: 20161019
  Transmission Date: 20170207
  Serious: Yes (Death, Hospitalization)
  Sender: FDA-Public Use
  Company Number: DE-ABBVIE-16K-062-1704135-00

PATIENT
  Age: 74 Year
  Sex: Male

DRUGS (12)
  1. CLOZAPIN [Concomitant]
     Active Substance: CLOZAPINE
     Indication: HALLUCINATION
     Dosage: 1/2-1/2-1 TAB
  2. VITAMIN B [Concomitant]
     Active Substance: VITAMIN B
     Indication: PRODUCT USED FOR UNKNOWN INDICATION
  3. FINASTERIDE. [Concomitant]
     Active Substance: FINASTERIDE
     Indication: PRODUCT USED FOR UNKNOWN INDICATION
  4. RAMIPRIL. [Concomitant]
     Active Substance: RAMIPRIL
     Indication: PRODUCT USED FOR UNKNOWN INDICATION
     Dates: end: 201606
  5. PANTOZOL [Concomitant]
     Active Substance: PANTOPRAZOLE SODIUM
     Indication: PRODUCT USED FOR UNKNOWN INDICATION
  6. APIXABAN [Concomitant]
     Active Substance: APIXABAN
     Indication: PRODUCT USED FOR UNKNOWN INDICATION
  7. METOPROLOL. [Concomitant]
     Active Substance: METOPROLOL
     Indication: PRODUCT USED FOR UNKNOWN INDICATION
  8. ASPIRIN. [Concomitant]
     Active Substance: ASPIRIN
     Indication: PRODUCT USED FOR UNKNOWN INDICATION
  9. TAMSULOSIN [Concomitant]
     Active Substance: TAMSULOSIN
     Indication: PRODUCT USED FOR UNKNOWN INDICATION
  10. DUODOPA [Suspect]
     Active Substance: CARBIDOPA\LEVODOPA
     Indication: PARKINSON^S DISEASE
     Dosage: MD 11.0 ML; CRD 4.0 ML/H; ED 3.0 ML
     Route: 050
     Dates: start: 20070706, end: 201606
  11. DUODOPA [Suspect]
     Active Substance: CARBIDOPA\LEVODOPA
     Dosage: MD 11,0 ML CRD 4,4 ML/H ED 3,0 ML
     Route: 050
     Dates: start: 201606
  12. DOPADURA RETARD [Concomitant]
     Indication: PRODUCT USED FOR UNKNOWN INDICATION

REACTIONS (32)
  - Benign prostatic hyperplasia [Unknown]
  - Blood calcium decreased [Unknown]
  - Blood urea increased [Recovered/Resolved]
  - Brain natriuretic peptide increased [Unknown]
  - Vitamin B6 decreased [Unknown]
  - Red blood cell count decreased [Unknown]
  - Mean cell haemoglobin decreased [Unknown]
  - Activated partial thromboplastin time prolonged [Unknown]
  - Device dislocation [Unknown]
  - Blood albumin decreased [Unknown]
  - Haemoglobin decreased [Unknown]
  - Mean cell haemoglobin concentration decreased [Unknown]
  - Dyskinesia [Recovering/Resolving]
  - Prothrombin time prolonged [Unknown]
  - Myocardial infarction [Fatal]
  - On and off phenomenon [Recovering/Resolving]
  - Red cell distribution width increased [Unknown]
  - Hypokinesia [Unknown]
  - Delirium [Unknown]
  - Blood creatinine decreased [Unknown]
  - Fall [Unknown]
  - Restlessness [Recovering/Resolving]
  - Hypotension [Unknown]
  - Disorientation [Recovering/Resolving]
  - Urinary retention [Unknown]
  - C-reactive protein increased [Unknown]
  - Blood folate decreased [Unknown]
  - General physical health deterioration [Fatal]
  - Hallucination [Unknown]
  - Blood creatine phosphokinase increased [Unknown]
  - Vitamin D decreased [Unknown]
  - Haematocrit decreased [Unknown]

NARRATIVE: CASE EVENT DATE: 20160503
